FAERS Safety Report 8881081 (Version 1)
Quarter: 2012Q4

REPORT INFORMATION
  Report Type: 
  Country: US (occurrence: US)
  Receive Date: 20121031
  Receipt Date: 20121031
  Transmission Date: 20130627
  Serious: Yes (Other)
  Sender: FDA-Public Use
  Company Number: US-ASTRAZENECA-2012SE79993

PATIENT
  Age: 57 Year
  Sex: Female

DRUGS (2)
  1. BRILINTA [Suspect]
     Indication: ACUTE MYOCARDIAL INFARCTION
     Dosage: UNKNOWN LOADING DOSE
     Route: 048
     Dates: start: 20121006, end: 20121006
  2. BRILINTA [Suspect]
     Indication: ACUTE MYOCARDIAL INFARCTION
     Route: 048
     Dates: start: 20121007

REACTIONS (3)
  - Electrocardiogram ST segment elevation [Unknown]
  - Chest pain [Recovered/Resolved]
  - Off label use [Unknown]
